FAERS Safety Report 4700101-4 (Version None)
Quarter: 2005Q2

REPORT INFORMATION
  Report Type: 
  Country: None (occurrence: None)
  Receive Date: 20050623
  Receipt Date: 20050623
  Transmission Date: 20051028
  Serious: No
  Sender: FDA-Public Use
  Company Number: None

PATIENT
  Age: 30 Year
  Sex: Female

DRUGS (2)
  1. VIVELLE-DOT [Suspect]
     Indication: HOT FLUSH
     Dosage: APPLY ONE PATCH TWICE WEEKLY
     Dates: start: 20050101
  2. VIVELLE-DOT [Suspect]
     Indication: MENOPAUSAL SYMPTOMS PROPHYLAXIS
     Dosage: APPLY ONE PATCH TWICE WEEKLY
     Dates: start: 20050101

REACTIONS (2)
  - HOT FLUSH [None]
  - PHARMACEUTICAL PRODUCT COMPLAINT [None]
